FAERS Safety Report 5410017-6 (Version None)
Quarter: 2007Q3

REPORT INFORMATION
  Report Type: 
  Country: None (occurrence: None)
  Receive Date: 20070809
  Receipt Date: 20070801
  Transmission Date: 20080115
  Serious: Yes (Hospitalization)
  Sender: FDA-Public Use
  Company Number: US-ABBOTT-07P-163-0372799-00

PATIENT
  Sex: Female
  Weight: 87.622 kg

DRUGS (9)
  1. HUMIRA [Suspect]
     Indication: RHEUMATOID ARTHRITIS
     Route: 058
     Dates: start: 20051101
  2. HUMIRA [Suspect]
     Route: 058
     Dates: end: 20061101
  3. HUMIRA [Suspect]
     Route: 058
     Dates: start: 20070201, end: 20070622
  4. DYAZIDE [Concomitant]
     Indication: OEDEMA PERIPHERAL
     Route: 048
     Dates: start: 20050101
  5. DYAZIDE [Concomitant]
     Indication: BLOOD PRESSURE
     Route: 048
  6. FOLIC ACID [Concomitant]
     Indication: VITAMIN SUPPLEMENTATION
     Route: 048
     Dates: start: 20040101
  7. TRAMADOL HCL [Concomitant]
     Indication: INSOMNIA
     Route: 048
     Dates: start: 20040101
  8. VICODIN [Concomitant]
     Indication: MIGRAINE
     Dosage: 5/500 MG
     Route: 048
     Dates: start: 20030101
  9. VICODIN [Concomitant]
     Indication: PAIN

REACTIONS (16)
  - ABASIA [None]
  - BACK DISORDER [None]
  - BLOOD CREATININE INCREASED [None]
  - BLOOD GLUCOSE INCREASED [None]
  - DEHYDRATION [None]
  - DYSSTASIA [None]
  - FATIGUE [None]
  - INJECTION SITE IRRITATION [None]
  - LABORATORY TEST ABNORMAL [None]
  - NERVE COMPRESSION [None]
  - PAIN [None]
  - PYREXIA [None]
  - SLUGGISHNESS [None]
  - THIRST [None]
  - UNEVALUABLE EVENT [None]
  - VOCAL CORD CYST [None]
